FAERS Safety Report 4524198-X (Version None)
Quarter: 2004Q4

REPORT INFORMATION
  Report Type: 
  Country: None (occurrence: None)
  Receive Date: 20041209
  Receipt Date: 20041129
  Transmission Date: 20050328
  Serious: Yes (Death)
  Sender: FDA-Public Use
  Company Number: 2004100569

PATIENT
  Age: 48 Year
  Sex: Female

DRUGS (1)
  1. PSEUDOEPHEDRINE (PSEUDOEPHEDRINE) [Suspect]
     Dosage: 1 TABLET 60 MG QD, ORAL
     Route: 048

REACTIONS (3)
  - ANGIOGRAM ABNORMAL [None]
  - BLOOD PRESSURE INCREASED [None]
  - HAEMORRHAGIC STROKE [None]
